FAERS Safety Report 11109247 (Version 2)
Quarter: 2017Q2

REPORT INFORMATION
  Report Type: Spontaneous
  Country: US (occurrence: US)
  Receive Date: 20150513
  Receipt Date: 20170512
  Transmission Date: 20170829
  Serious: No
  Sender: FDA-Public Use
  Company Number: US-JNJFOC-20150505832

PATIENT
  Sex: Male

DRUGS (6)
  1. RISPERDAL [Suspect]
     Active Substance: RISPERIDONE
     Indication: AGITATION
     Route: 048
     Dates: start: 2011, end: 2013
  2. RISPERDAL [Suspect]
     Active Substance: RISPERIDONE
     Indication: HALLUCINATION, AUDITORY
     Route: 048
     Dates: start: 2011, end: 2013
  3. RISPERDAL [Suspect]
     Active Substance: RISPERIDONE
     Indication: SCHIZOPHRENIA
     Route: 048
     Dates: start: 2011, end: 2013
  4. INVEGA [Suspect]
     Active Substance: PALIPERIDONE
     Indication: PRODUCT USED FOR UNKNOWN INDICATION
     Route: 048
  5. RISPERDAL [Suspect]
     Active Substance: RISPERIDONE
     Indication: ANGER
     Route: 048
     Dates: start: 2011, end: 2013
  6. RISPERDAL [Suspect]
     Active Substance: RISPERIDONE
     Indication: PARANOIA
     Route: 048
     Dates: start: 2011, end: 2013

REACTIONS (6)
  - Galactorrhoea [Unknown]
  - Pain [Unknown]
  - Gynaecomastia [Unknown]
  - Abnormal weight gain [Unknown]
  - Hyperprolactinaemia [Unknown]
  - Drug ineffective [Unknown]

NARRATIVE: CASE EVENT DATE: 2011
